FAERS Safety Report 14338190 (Version 3)
Quarter: 2018Q2

REPORT INFORMATION
  Report Type: Report from Study
  Country: US (occurrence: US)
  Receive Date: 20171229
  Receipt Date: 20180418
  Transmission Date: 20180711
  Serious: Yes (Hospitalization, Other)
  Sender: FDA-Public Use
  Company Number: US-TAKEDA-2017TUS022042

PATIENT
  Age: 40 Year
  Sex: Male

DRUGS (3)
  1. LIALDA [Concomitant]
     Active Substance: MESALAMINE
     Dosage: UNK
  2. IMURAN [Suspect]
     Active Substance: AZATHIOPRINE
     Indication: PRODUCT USED FOR UNKNOWN INDICATION
     Dosage: UNK
     Route: 065
  3. VEDOLIZUMAB [Suspect]
     Active Substance: VEDOLIZUMAB
     Indication: CROHN^S DISEASE
     Dosage: 300 MG, UNK
     Route: 042
     Dates: start: 20171004, end: 201803

REACTIONS (16)
  - Nasopharyngitis [Recovered/Resolved]
  - Crohn^s disease [Unknown]
  - Arthralgia [Unknown]
  - Hallucination [Unknown]
  - Renal failure [Recovered/Resolved]
  - Pyrexia [Recovered/Resolved]
  - Tremor [Recovered/Resolved]
  - Influenza like illness [Not Recovered/Not Resolved]
  - Feeling abnormal [Recovered/Resolved]
  - Confusional state [Recovered/Resolved]
  - Back pain [Unknown]
  - Abdominal pain [Unknown]
  - Asthenia [Unknown]
  - Skin lesion [Unknown]
  - Headache [Recovered/Resolved]
  - Drug ineffective [Unknown]

NARRATIVE: CASE EVENT DATE: 20171017
